FAERS Safety Report 11151424 (Version 2)
Quarter: 2015Q2

REPORT INFORMATION
  Report Type: Spontaneous
  Country: US (occurrence: US)
  Receive Date: 20150601
  Receipt Date: 20150610
  Transmission Date: 20150821
  Serious: Yes (Hospitalization)
  Sender: FDA-Public Use
  Company Number: US-BIOGENIDEC-2015BI071761

PATIENT
  Age: 73 Year
  Sex: Female

DRUGS (11)
  1. TUBERSOL [Concomitant]
     Active Substance: TUBERCULIN PURIFIED PROTEIN DERIVATIVE
  2. COUMADIN [Concomitant]
     Active Substance: WARFARIN SODIUM
  3. HYDROCODONE [Concomitant]
     Active Substance: HYDROCODONE
  4. IBUPROFEN. [Concomitant]
     Active Substance: IBUPROFEN
  5. LEVOXYL [Concomitant]
     Active Substance: LEVOTHYROXINE SODIUM
  6. MIRALAX [Concomitant]
     Active Substance: POLYETHYLENE GLYCOL 3350
  7. NORVASC [Concomitant]
     Active Substance: AMLODIPINE BESYLATE
  8. MACRODANTIN [Concomitant]
     Active Substance: NITROFURANTOIN
  9. PROVIGIL [Concomitant]
     Active Substance: MODAFINIL
  10. AVONEX [Suspect]
     Active Substance: INTERFERON BETA-1A
     Indication: MULTIPLE SCLEROSIS
     Route: 030
  11. FOSAMAX [Concomitant]
     Active Substance: ALENDRONATE SODIUM

REACTIONS (1)
  - Wound [Unknown]

NARRATIVE: CASE EVENT DATE: 20150507
